FAERS Safety Report 11050029 (Version 1)
Quarter: 2015Q2

REPORT INFORMATION
  Report Type: Spontaneous
  Country: DE (occurrence: DE)
  Receive Date: 20150420
  Receipt Date: 20150420
  Transmission Date: 20150821
  Serious: Yes (Other)
  Sender: FDA-Public Use
  Company Number: ALCN2015DE002481

PATIENT
  Sex: Female

DRUGS (1)
  1. VITALUX PLUS [Suspect]
     Active Substance: VITAMINS
     Dosage: 1 DF, QD (AT NOON TIME)

REACTIONS (2)
  - Visual acuity reduced [Unknown]
  - Macular degeneration [Unknown]
